FAERS Safety Report 4834733-X (Version None)
Quarter: 2005Q4

REPORT INFORMATION
  Report Type: 
  Country: None (occurrence: None)
  Receive Date: 20051122
  Receipt Date: 20050728
  Transmission Date: 20060501
  Serious: No
  Sender: FDA-Public Use
  Company Number: US-BRISTOL-MYERS SQUIBB COMPANY-13054820

PATIENT
  Age: 61 Year
  Sex: Female
  Weight: 70 kg

DRUGS (5)
  1. PRAVACHOL [Suspect]
     Route: 048
     Dates: start: 20050714, end: 20050718
  2. SINGULAIR [Concomitant]
  3. ADVAIR DISKUS 100/50 [Concomitant]
  4. CLARINEX [Concomitant]
  5. PAXIL [Concomitant]

REACTIONS (1)
  - PRURITUS [None]
